FAERS Safety Report 20664891 (Version 1)
Quarter: 2022Q2

REPORT INFORMATION
  Report Type: Spontaneous
  Country: US (occurrence: None)
  Receive Date: 20220401
  Receipt Date: 20220401
  Transmission Date: 20220720
  Serious: Yes (Hospitalization)
  Sender: FDA-Public Use
  Company Number: None

PATIENT
  Age: 10 Month
  Sex: Female
  Weight: 8 kg

DRUGS (5)
  1. GAMUNEX-C [Suspect]
     Active Substance: HUMAN IMMUNOGLOBULIN G
     Indication: Galactosialidosis
     Dosage: OTHER FREQUENCY : ONCE X1 DOSE;?
     Route: 041
     Dates: start: 20210914
  2. ACETAMINOPHEN [Concomitant]
     Active Substance: ACETAMINOPHEN
     Dates: start: 20210914
  3. DIPHENHYDRAMINE [Concomitant]
     Active Substance: DIPHENHYDRAMINE
     Dates: start: 20210914
  4. CHOLECALCIFEROL [Concomitant]
     Active Substance: CHOLECALCIFEROL
     Dates: start: 20210914
  5. SIROLIMUS [Concomitant]
     Active Substance: SIROLIMUS
     Dates: start: 20210914

REACTIONS (2)
  - Muscle twitching [None]
  - Stridor [None]

NARRATIVE: CASE EVENT DATE: 20220211
